FAERS Safety Report 16662078 (Version 2)
Quarter: 2020Q1

REPORT INFORMATION
  Report Type: Report from Study
  Country: US (occurrence: US)
  Receive Date: 20190802
  Receipt Date: 20200129
  Transmission Date: 20200409
  Serious: No
  Sender: FDA-Public Use
  Company Number: US-EXELIXIS-CABO-18017780

PATIENT
  Sex: Male

DRUGS (19)
  1. CLONIDINE. [Concomitant]
     Active Substance: CLONIDINE
  2. FLOMAX [Concomitant]
     Active Substance: TAMSULOSIN HYDROCHLORIDE
  3. PREVACID [Concomitant]
     Active Substance: LANSOPRAZOLE
  4. PROCHLORPERAZINE. [Concomitant]
     Active Substance: PROCHLORPERAZINE
  5. PRESERVISION AREDS [Concomitant]
     Active Substance: MINERALS\VITAMINS
  6. LANTUS [Concomitant]
     Active Substance: INSULIN GLARGINE
  7. CABOMETYX [Suspect]
     Active Substance: CABOZANTINIB S-MALATE
     Indication: CHOLANGIOCARCINOMA
  8. FUROSEMIDE. [Concomitant]
     Active Substance: FUROSEMIDE
  9. TRIAMCINOLONE [Concomitant]
     Active Substance: TRIAMCINOLONE
  10. MULTIVITAMINS W/MINERALS [Concomitant]
     Active Substance: MINERALS\VITAMINS
  11. ASPIRIN. [Concomitant]
     Active Substance: ASPIRIN
  12. CABOMETYX [Suspect]
     Active Substance: CABOZANTINIB S-MALATE
     Indication: METASTASES TO BONE
     Dosage: 40 MG, QD
     Route: 048
     Dates: start: 20180419
  13. TYLENOL [Concomitant]
     Active Substance: ACETAMINOPHEN
  14. CABOMETYX [Suspect]
     Active Substance: CABOZANTINIB S-MALATE
     Indication: METASTASES TO LIVER
     Dosage: 60 MG, QD
     Route: 048
     Dates: start: 20180315, end: 2018
  15. POTASSIUM [Concomitant]
     Active Substance: POTASSIUM
  16. SIMVASTATIN. [Concomitant]
     Active Substance: SIMVASTATIN
  17. PROPRANOLOL [Concomitant]
     Active Substance: PROPRANOLOL HYDROCHLORIDE
  18. COMPAZINE [Concomitant]
     Active Substance: PROCHLORPERAZINE MALEATE
  19. HYDRALAZINE HCL [Concomitant]
     Active Substance: HYDRALAZINE HYDROCHLORIDE

REACTIONS (2)
  - Urinary retention [Unknown]
  - Off label use [Unknown]

NARRATIVE: CASE EVENT DATE: 2018
